FAERS Safety Report 6577433-0 (Version None)
Quarter: 2010Q1

REPORT INFORMATION
  Report Type: 
  Country: None (occurrence: None)
  Receive Date: 20100211
  Receipt Date: 20100204
  Transmission Date: 20100710
  Serious: Yes (Hospitalization)
  Sender: FDA-Public Use
  Company Number: JP-ALLERGAN-1001178US

PATIENT
  Age: 92 Year
  Sex: Male

DRUGS (2)
  1. LUMIGAN [Suspect]
     Indication: GLAUCOMA
     Dosage: 1 GTT, QD
     Route: 047
     Dates: start: 20091204, end: 20100115
  2. BIMATOPROST [Concomitant]
     Dosage: UNK
     Dates: start: 20091204, end: 20100115

REACTIONS (2)
  - ENDOPHTHALMITIS [None]
  - ULCERATIVE KERATITIS [None]
